FAERS Safety Report 8925295 (Version 1)
Quarter: 2012Q4

REPORT INFORMATION
  Report Type: 
  Country: GB (occurrence: GB)
  Receive Date: 20121126
  Receipt Date: 20121126
  Transmission Date: 20130627
  Serious: Yes (Other)
  Sender: FDA-Public Use
  Company Number: GB-PFIZER INC-2012290933

PATIENT
  Age: 76 Year
  Sex: Female

DRUGS (2)
  1. PHENYTOIN [Suspect]
     Dosage: UNK
  2. KEPPRA [Suspect]
     Indication: EPILEPSY
     Dosage: 500 mg, 2x/day

REACTIONS (4)
  - Diabetes mellitus [Not Recovered/Not Resolved]
  - Haemochromatosis [Not Recovered/Not Resolved]
  - Balance disorder [Not Recovered/Not Resolved]
  - Coordination abnormal [Not Recovered/Not Resolved]
